FAERS Safety Report 14256959 (Version 1)
Quarter: 2017Q4

REPORT INFORMATION
  Report Type: Spontaneous
  Country: US (occurrence: US)
  Receive Date: 20171206
  Receipt Date: 20171206
  Transmission Date: 20180321
  Serious: No
  Sender: FDA-Public Use
  Company Number: US-009507513-1711USA013653

PATIENT
  Age: 67 Year
  Sex: Female
  Weight: 50.3 kg

DRUGS (1)
  1. KEYTRUDA [Suspect]
     Active Substance: PEMBROLIZUMAB
     Indication: NON-SMALL CELL LUNG CANCER
     Dosage: 200 MG, Q3W
     Route: 042
     Dates: start: 20171018

REACTIONS (3)
  - Product label confusion [Unknown]
  - Incorrect drug administration rate [Unknown]
  - No adverse event [Unknown]

NARRATIVE: CASE EVENT DATE: 20171018
